FAERS Safety Report 4378587-7 (Version None)
Quarter: 2004Q2

REPORT INFORMATION
  Report Type: 
  Country: None (occurrence: None)
  Receive Date: 20040609
  Receipt Date: 20040505
  Transmission Date: 20050107
  Serious: Yes (Death)
  Sender: FDA-Public Use
  Company Number: US013257

PATIENT
  Sex: Male

DRUGS (2)
  1. ACTIQ [Suspect]
  2. SOMA [Suspect]

REACTIONS (1)
  - OVERDOSE [None]
